FAERS Safety Report 22282956 (Version 1)
Quarter: 2023Q2

REPORT INFORMATION
  Report Type: Spontaneous
  Country: US (occurrence: US)
  Receive Date: 20230504
  Receipt Date: 20230504
  Transmission Date: 20230721
  Serious: Yes (Hospitalization)
  Sender: FDA-Public Use
  Company Number: US-MYLANLABS-2023M1046524

PATIENT
  Age: 36 Year
  Sex: Male

DRUGS (2)
  1. OLANZAPINE [Suspect]
     Active Substance: OLANZAPINE
     Indication: Schizophrenia
     Dosage: UNK
     Route: 065
  2. CEFTRIAXONE [Concomitant]
     Active Substance: CEFTRIAXONE
     Indication: Escherichia bacteraemia
     Dosage: UNK
     Route: 065

REACTIONS (8)
  - Acute coronary syndrome [Unknown]
  - Cardiac arrest [Unknown]
  - Ventricular fibrillation [Unknown]
  - Acute myocardial infarction [Unknown]
  - Cardiac ventricular thrombosis [Recovered/Resolved]
  - Pulmonary embolism [Unknown]
  - Vena cava thrombosis [Unknown]
  - Shock [Unknown]
